FAERS Safety Report 7662183-X (Version None)
Quarter: 2011Q3

REPORT INFORMATION
  Report Type: 
  Country: None (occurrence: None)
  Receive Date: 20110805
  Receipt Date: 20101220
  Transmission Date: 20111222
  Serious: No
  Sender: FDA-Public Use
  Company Number: US-ABBOTT-10P-163-0692808-00

PATIENT
  Sex: Male
  Weight: 77.18 kg

DRUGS (5)
  1. ASPIRIN [Concomitant]
     Indication: PRODUCT USED FOR UNKNOWN INDICATION
  2. ATENOLOL [Concomitant]
     Indication: PRODUCT USED FOR UNKNOWN INDICATION
  3. NIASPAN [Suspect]
     Dosage: 1/2 TABLET
     Dates: start: 20101201
  4. NIASPAN [Suspect]
     Indication: HYPERLIPIDAEMIA
     Dosage: 1000MG QHS
     Dates: start: 20090101
  5. SIMCOR [Suspect]
     Indication: HYPERLIPIDAEMIA
     Dosage: 500/20
     Dates: start: 20101101

REACTIONS (2)
  - WRONG TECHNIQUE IN DRUG USAGE PROCESS [None]
  - FLUSHING [None]
